FAERS Safety Report 5052944-8 (Version None)
Quarter: 2006Q3

REPORT INFORMATION
  Report Type: 
  Country: None (occurrence: None)
  Receive Date: 20060712
  Receipt Date: 20060627
  Transmission Date: 20061208
  Serious: Yes (Other)
  Sender: FDA-Public Use
  Company Number: US-2006-017256

PATIENT
  Age: 63 Year
  Sex: Female

DRUGS (9)
  1. BETASERON [Suspect]
     Indication: RELAPSING-REMITTING MULTIPLE SCLEROSIS
     Dosage: 8 MIU, EVERY 2D, SUBCUTANEOUS
     Route: 058
     Dates: start: 20021016
  2. ZOCOR [Concomitant]
  3. BACLOFEN [Concomitant]
  4. LISINOPRIL [Concomitant]
  5. PAXIL [Concomitant]
  6. GLIPIZIDE [Concomitant]
  7. AVANDIA [Concomitant]
  8. GLUCOPHAGE [Concomitant]
  9. NITROFURANTOIN [Concomitant]

REACTIONS (3)
  - HEPATOMEGALY [None]
  - LIVER FUNCTION TEST ABNORMAL [None]
  - MOBILITY DECREASED [None]
